FAERS Safety Report 7461916-5 (Version None)
Quarter: 2011Q2

REPORT INFORMATION
  Report Type: 
  Country: None (occurrence: None)
  Receive Date: 20110506
  Receipt Date: 20110321
  Transmission Date: 20111010
  Serious: Yes (Hospitalization, Other)
  Sender: FDA-Public Use
  Company Number: US-BAYER-201038300NA

PATIENT
  Age: 28 Year
  Sex: Female

DRUGS (7)
  1. VITAMINS [Concomitant]
  2. CLONIDINE [Concomitant]
  3. YASMIN [Suspect]
     Indication: ACNE
     Route: 048
  4. DROSPIRENONE AND ETHINYL ESTRADIOL [Suspect]
  5. DEPO-PROVERA [Concomitant]
     Dosage: UNK
     Dates: start: 20060601
  6. YAZ [Suspect]
     Indication: ACNE
     Route: 048
  7. IRON SULFATETHIAMIN COMPOUND TAB [Concomitant]

REACTIONS (2)
  - CEREBROVASCULAR ACCIDENT [None]
  - MYOCARDIAL INFARCTION [None]
